FAERS Safety Report 7805230-4 (Version None)
Quarter: 2011Q4

REPORT INFORMATION
  Report Type: 
  Country: None (occurrence: None)
  Receive Date: 20111010
  Receipt Date: 20110927
  Transmission Date: 20120403
  Serious: Yes (Other)
  Sender: FDA-Public Use
  Company Number: GB-ELI_LILLY_AND_COMPANY-GB201109007538

PATIENT
  Age: 36 Year
  Sex: Female
  Weight: 53.4 kg

DRUGS (12)
  1. FLUCONAZOLE [Concomitant]
  2. HALOPERIDOL [Concomitant]
  3. ORPHENADRINE CITRATE [Concomitant]
  4. OLANZAPINE [Suspect]
     Indication: PSYCHOTIC DISORDER
     Dosage: 10 MG, UNK
     Route: 048
     Dates: start: 20110817
  5. VALPROATE SODIUM [Concomitant]
  6. TRIMETHOPRIM [Concomitant]
  7. ACETAMINOPHEN [Concomitant]
  8. DEPAKOTE [Concomitant]
  9. PROCYCLIDINE HYDROCHLORIDE 2MG TAB [Concomitant]
  10. IBUPROFEN [Concomitant]
  11. LORAZEPAM [Concomitant]
  12. ZOPICLONE [Concomitant]

REACTIONS (1)
  - DEEP VEIN THROMBOSIS [None]
